FAERS Safety Report 19839542 (Version 2)
Quarter: 2022Q2

REPORT INFORMATION
  Report Type: Spontaneous
  Country: JP (occurrence: JP)
  Receive Date: 20210915
  Receipt Date: 20220616
  Transmission Date: 20220721
  Serious: Yes (Death, Other)
  Sender: FDA-Public Use
  Company Number: JP-PFIZER INC-202101146972

PATIENT
  Age: 76 Year
  Sex: Female
  Weight: 50.7 kg

DRUGS (3)
  1. BESPONSA [Suspect]
     Active Substance: INOTUZUMAB OZOGAMICIN
     Indication: Acute lymphocytic leukaemia recurrent
     Dosage: 0.68 MG/M2, DAILY
     Route: 041
     Dates: start: 20210826, end: 20210826
  2. PREDONINE [Concomitant]
     Active Substance: PREDNISOLONE
     Indication: Acute lymphocytic leukaemia recurrent
     Dosage: 60 MG
     Route: 042
     Dates: start: 20210821, end: 20210824
  3. PREDONINE [Concomitant]
     Active Substance: PREDNISOLONE
     Dosage: 100 MG
     Route: 042
     Dates: start: 20210826, end: 20210827

REACTIONS (12)
  - Subdural haemorrhage [Fatal]
  - Coagulopathy [Fatal]
  - Pulmonary alveolar haemorrhage [Fatal]
  - Haemorrhagic diathesis [Fatal]
  - Acquired haemophilia [Unknown]
  - Tumour lysis syndrome [Unknown]
  - Depressed level of consciousness [Unknown]
  - Subdural haematoma [Unknown]
  - Activated partial thromboplastin time prolonged [Not Recovered/Not Resolved]
  - Liver disorder [Unknown]
  - Jaundice [Unknown]
  - Blood bilirubin increased [Unknown]

NARRATIVE: CASE EVENT DATE: 20210829
